FAERS Safety Report 9300694 (Version 2)
Quarter: 2013Q2

REPORT INFORMATION
  Report Type: Spontaneous
  Country: US (occurrence: US)
  Receive Date: 20130521
  Receipt Date: 20130611
  Transmission Date: 20140414
  Serious: Yes (Other)
  Sender: FDA-Public Use
  Company Number: US-JNJFOC-20130508543

PATIENT
  Age: 58 Year
  Sex: Female
  Weight: 54.43 kg

DRUGS (18)
  1. REMICADE [Suspect]
     Indication: PSORIATIC ARTHROPATHY
     Dosage: APPROXIMATE NUMBER OF INFUSIONS PATIENT RECEIVED:34??DOSAGE FORM: INTRAVENOUS SOLUTION RECONSTITUTED
     Route: 042
     Dates: start: 20080923
  2. METHOTREXATE [Concomitant]
     Route: 048
  3. FORTEO [Concomitant]
     Route: 065
  4. GABAPENTIN [Concomitant]
     Route: 048
  5. ADVAIR DISKUS [Concomitant]
     Indication: ASTHMA
     Dosage: DOSE: 250-50 MCG/DOSE
     Route: 055
  6. CYMBALTA [Concomitant]
     Route: 048
  7. DONEPEZIL [Concomitant]
     Route: 048
  8. FOLIC ACID [Concomitant]
     Route: 048
  9. LISINOPRIL [Concomitant]
     Route: 048
  10. METHOCARBAMOL [Concomitant]
     Dosage: DOSAGE: 1 TO 2 TABLETS DAILY AS NEEDED
     Route: 048
  11. OMEPRAZOLE [Concomitant]
     Route: 048
  12. ONDANSETRON [Concomitant]
     Dosage: DOSAGE: 1 TABLET 3 TIMES DAILY AS NECESSARY
     Route: 048
  13. PREMARIN [Concomitant]
     Route: 048
  14. SIMVASTATIN [Concomitant]
     Route: 048
  15. SINGULAIR [Concomitant]
     Route: 048
  16. VESICARE [Concomitant]
     Route: 048
  17. XOPENEX [Concomitant]
     Dosage: DOSE: 45 MCG/ ACT INHALATION; 2 PUFFS EVERY 4 HOURS AS NEEDED
     Route: 055
  18. ZYRTEC [Concomitant]
     Indication: HYPERSENSITIVITY
     Route: 048

REACTIONS (4)
  - Amyotrophic lateral sclerosis [Not Recovered/Not Resolved]
  - Small intestinal resection [Unknown]
  - Foot fracture [Unknown]
  - Surgery [Unknown]
